FAERS Safety Report 8374977-6 (Version None)
Quarter: 2012Q2

REPORT INFORMATION
  Report Type: 
  Country: None (occurrence: None)
  Receive Date: 20120521
  Receipt Date: 20120516
  Transmission Date: 20120825
  Serious: Yes (Life-Threatening, Hospitalization)
  Sender: FDA-Public Use
  Company Number: US-CELGENEUS-163-C5013-10071690

PATIENT
  Sex: Male
  Weight: 113.05 kg

DRUGS (59)
  1. LENALIDOMIDE [Suspect]
     Indication: PROSTATE CANCER
     Dosage: 25 MILLIGRAM
     Route: 048
     Dates: start: 20100518
  2. HUMALOG [Concomitant]
     Dosage: SLIDING SCALE
     Route: 058
     Dates: start: 20080801
  3. WARFARIN SODIUM [Concomitant]
     Dosage: 2.5 MILLIGRAM
     Route: 065
  4. VANCOMYCIN [Concomitant]
     Indication: PROTEUS INFECTION
     Route: 041
  5. VANCOMYCIN [Concomitant]
     Route: 041
  6. IMIPENEM AND CILASTATIN SODIUM [Concomitant]
     Indication: FEBRILE NEUTROPENIA
  7. SODIUM CHLORIDE [Concomitant]
     Dosage: 125 MILLILITER
     Route: 041
     Dates: start: 20100714, end: 20100715
  8. LENALIDOMIDE [Suspect]
     Dosage: 25 MILLIGRAM
     Route: 048
     Dates: start: 20100707, end: 20100713
  9. PRIMAXIN [Concomitant]
     Indication: PROTEUS INFECTION
  10. SODIUM CHLORIDE [Concomitant]
     Dosage: 10 MILLILITER
     Route: 041
     Dates: start: 20100714, end: 20100718
  11. PIPERACILLIN AND TAZOBACTAM [Concomitant]
     Dosage: 3.375 GRAM
     Route: 041
     Dates: start: 20100719, end: 20100720
  12. DEMADEX [Concomitant]
     Route: 065
  13. IMDUR [Concomitant]
     Indication: HYPERTENSION
     Dosage: 30 MILLIGRAM
     Route: 048
     Dates: start: 19900101
  14. LUPRON [Concomitant]
     Indication: HORMONE SUPPRESSION THERAPY
     Route: 030
     Dates: start: 20090201
  15. MEPHYTON [Concomitant]
     Indication: THROMBOCYTOPENIA
     Dosage: 25 MILLIGRAM
     Route: 048
     Dates: start: 20100728, end: 20100728
  16. FAT EMULSION [Concomitant]
     Dosage: 250 MILLILITER
     Route: 041
     Dates: start: 20100715, end: 20100716
  17. LANTUS [Concomitant]
     Dosage: 30 UNITS
     Route: 058
     Dates: start: 20100714, end: 20100714
  18. LANTUS [Concomitant]
     Indication: FEBRILE NEUTROPENIA
     Dosage: 30 UNITS
     Route: 058
     Dates: start: 20100716, end: 20100724
  19. DOCETAXEL [Suspect]
     Dosage: 160 MILLIGRAM
     Route: 065
     Dates: start: 20100707, end: 20100707
  20. AMLODIPINE BESYLATE [Concomitant]
     Indication: HYPERTENSION
     Dosage: 2.5 MILLIGRAM
     Route: 048
     Dates: start: 19900101
  21. ASPIRIN [Concomitant]
     Indication: THROMBOSIS PROPHYLAXIS
     Dosage: 81 MILLIGRAM
     Route: 048
     Dates: start: 19900101
  22. DEMADEX [Concomitant]
     Indication: HYPERTENSION
     Dosage: 20 MILLIGRAM
     Route: 065
     Dates: start: 19900101
  23. IMDUR [Concomitant]
     Dosage: 20 MILLIGRAM
     Route: 048
  24. VANCOMYCIN [Concomitant]
     Indication: PSEUDOMONAS INFECTION
     Dosage: 1500 MILLIGRAM
     Route: 041
     Dates: start: 20100714, end: 20100714
  25. CIPROFLOXACIN HCL [Concomitant]
     Indication: PSEUDOMONAS INFECTION
     Route: 065
     Dates: start: 20100101
  26. ARANESP [Concomitant]
     Dosage: 200 MICROGRAM
     Route: 058
     Dates: start: 20100720, end: 20100720
  27. POTASSIUM CHLORIDE [Concomitant]
     Dosage: 10 MILLIEQUIVALENTS
     Route: 048
     Dates: start: 20100718, end: 20100724
  28. ACETAMINOPHEN [Concomitant]
     Indication: PYREXIA
     Dosage: 650 MILLIGRAM
     Route: 048
     Dates: start: 20100714, end: 20100715
  29. KETOROLAC TROMETHAMINE [Concomitant]
     Indication: PAIN
     Dosage: 15 MILLIGRAM
     Route: 041
     Dates: start: 20100715, end: 20100716
  30. FAMOTIDINE [Concomitant]
     Dosage: 20 MILLIGRAM
     Route: 041
     Dates: start: 20100715, end: 20100724
  31. HYDROMORPHONE HCL [Concomitant]
     Indication: PAIN
     Dosage: .5 MILLIGRAM
     Route: 048
     Dates: start: 20100714, end: 20100714
  32. ATENOLOL [Concomitant]
     Indication: HYPERTENSION
     Dosage: 50 MILLIGRAM
     Route: 048
     Dates: start: 19900101
  33. WARFARIN SODIUM [Concomitant]
     Dosage: 7.5 MILLIGRAM
     Route: 048
     Dates: start: 20061001
  34. VANCOMYCIN [Concomitant]
     Indication: FEBRILE NEUTROPENIA
     Route: 041
  35. LORTAB [Concomitant]
     Dosage: 5/500
     Route: 065
  36. IMIPENEM AND CILASTATIN SODIUM [Concomitant]
     Dosage: 500 MILLIGRAM
     Route: 041
     Dates: start: 20100714, end: 20100719
  37. HYDROCODONE [Concomitant]
     Indication: PAIN
     Dosage: 7.5/500MG
     Route: 048
     Dates: start: 20100717, end: 20100724
  38. DOCUSATE SODIUM [Concomitant]
     Indication: CONSTIPATION
     Dosage: 100 MILLIGRAM
     Route: 048
     Dates: start: 20100716, end: 20100724
  39. ADULT TPN [Concomitant]
     Dosage: 50ML/HR
     Route: 041
     Dates: start: 20100714, end: 20100715
  40. DOCETAXEL [Suspect]
     Indication: PROSTATE CANCER
     Dosage: 160 MILLIGRAM
     Route: 065
     Dates: start: 20100518
  41. FLOMAX [Concomitant]
     Dosage: .4 MILLIGRAM
     Route: 048
     Dates: start: 20020201
  42. GASTROGRAFIN [Concomitant]
     Indication: SCAN WITH CONTRAST
     Dosage: 5 MILLILITER
     Route: 048
     Dates: start: 20100722, end: 20100722
  43. POTASSIUM CHLORIDE [Concomitant]
     Dosage: 20 MILLIEQUIVALENTS
     Route: 041
     Dates: start: 20100718, end: 20100718
  44. ISOSORBIDE MONONITRATE [Concomitant]
     Indication: CHEST PAIN
     Dosage: 120 MILLIGRAM
     Route: 048
     Dates: start: 20100714, end: 20100714
  45. FUROSEMIDE [Concomitant]
     Dosage: 40 MILLIGRAM
     Route: 041
     Dates: start: 20100715, end: 20100715
  46. LANTUS [Concomitant]
     Dosage: 50 IU (INTERNATIONAL UNIT)
     Route: 058
     Dates: start: 20080801
  47. PRIMAXIN [Concomitant]
     Indication: PSEUDOMONAS INFECTION
     Route: 065
     Dates: start: 20100101
  48. NEULASTA [Concomitant]
     Route: 065
  49. HYDROMORPHONE HCL [Concomitant]
     Dosage: 1 MILLIGRAM
     Route: 048
     Dates: start: 20100714, end: 20100724
  50. PREDNISONE [Suspect]
     Indication: PROSTATE CANCER
     Dosage: 5 MILLIGRAM
     Route: 065
     Dates: start: 20100518
  51. PREDNISONE [Suspect]
     Dosage: 5 MILLIGRAM
     Route: 065
     Dates: start: 20100707, end: 20100713
  52. DIFLUCAN [Concomitant]
     Indication: RASH
     Dosage: 100 MILLIGRAM
     Route: 048
     Dates: start: 20100528
  53. LOTRIMIN [Concomitant]
     Indication: RASH
     Route: 061
     Dates: start: 20100526, end: 20100528
  54. MYCOSTATIN [Concomitant]
     Indication: RASH
     Route: 061
     Dates: start: 20100528
  55. CIPROFLOXACIN HCL [Concomitant]
     Indication: PROTEUS INFECTION
  56. PRAVASTATIN [Concomitant]
     Dosage: 80 MILLIGRAM
     Route: 048
     Dates: start: 20100716, end: 20100723
  57. ENOXAPARIN [Concomitant]
     Dosage: 40 MICROGRAM
     Route: 058
     Dates: start: 20100717, end: 20100719
  58. SODIUM CHLORIDE [Concomitant]
     Dosage: 75ML/HR
     Route: 041
     Dates: start: 20100717, end: 20100724
  59. PIPERACILLIN AND TAZOBACTAM [Concomitant]
     Indication: FEBRILE NEUTROPENIA

REACTIONS (3)
  - GASTROINTESTINAL PERFORATION [None]
  - FEBRILE NEUTROPENIA [None]
  - PERITONITIS [None]
